FAERS Safety Report 4330683-6 (Version None)
Quarter: 2004Q1

REPORT INFORMATION
  Report Type: 
  Country: None (occurrence: None)
  Receive Date: 20040329
  Receipt Date: 20040312
  Transmission Date: 20041129
  Serious: Yes (Other)
  Sender: FDA-Public Use
  Company Number: QUIN-232

PATIENT
  Age: 24 Month
  Sex: Male
  Weight: 13.6079 kg

DRUGS (2)
  1. PRUXODIN CREAM [Suspect]
     Indication: DERMATITIS ATOPIC
     Dosage: 4 G ONCE TP
     Route: 061
     Dates: start: 20040309, end: 20040309
  2. ZYRTEC [Concomitant]

REACTIONS (1)
  - MYOCLONUS [None]
